FAERS Safety Report 10227567 (Version 1)
Quarter: 2014Q2

REPORT INFORMATION
  Report Type: Spontaneous
  Country: GB (occurrence: GB)
  Receive Date: 20140610
  Receipt Date: 20140610
  Transmission Date: 20141212
  Serious: Yes (Hospitalization, Disabling)
  Sender: FDA-Public Use
  Company Number: GB-ASTRAZENECA-2014SE38665

PATIENT
  Age: 68 Year
  Sex: Female
  Weight: 59 kg

DRUGS (5)
  1. ROSUVASTATIN [Suspect]
     Indication: BLOOD CHOLESTEROL INCREASED
     Route: 048
     Dates: start: 20100714, end: 20101209
  2. ATENOLOL [Concomitant]
  3. BISOPROLOL [Concomitant]
  4. CALCIUM [Concomitant]
  5. VITAMIN D3 [Concomitant]

REACTIONS (4)
  - Diarrhoea [Recovered/Resolved with Sequelae]
  - Iodine deficiency [Unknown]
  - Vomiting [Recovered/Resolved with Sequelae]
  - Myalgia [Recovered/Resolved with Sequelae]
